FAERS Safety Report 15600590 (Version 4)
Quarter: 2018Q4

REPORT INFORMATION
  Report Type: Report from Study
  Country: None (occurrence: DE)
  Receive Date: 20181109
  Receipt Date: 20181203
  Transmission Date: 20190205
  Serious: Yes (Death, Hospitalization, Other)
  Sender: FDA-Public Use
  Company Number: DE-ABBVIE-18S-062-2549680-00

PATIENT
  Age: 75 Year
  Sex: Male

DRUGS (1)
  1. DUODOPA [Suspect]
     Active Substance: CARBIDOPA\LEVODOPA
     Indication: PARKINSON^S DISEASE
     Dosage: MD 5.5 ML, CRD 3.4 ML/HR, ED 1.5 ML
     Route: 050
     Dates: start: 20180614

REACTIONS (11)
  - Sepsis [Fatal]
  - Infection [Unknown]
  - Terminal state [Unknown]
  - Multiple organ dysfunction syndrome [Unknown]
  - Epilepsy [Not Recovered/Not Resolved]
  - Cardiopulmonary failure [Not Recovered/Not Resolved]
  - Oral fungal infection [Unknown]
  - Cholecystitis [Unknown]
  - Weight decreased [Unknown]
  - Seizure [Unknown]
  - Parkinson^s disease [Not Recovered/Not Resolved]

NARRATIVE: CASE EVENT DATE: 2018
